FAERS Safety Report 7289952-2 (Version None)
Quarter: 2011Q1

REPORT INFORMATION
  Report Type: 
  Country: None (occurrence: None)
  Receive Date: 20110214
  Receipt Date: 20110208
  Transmission Date: 20110831
  Serious: Yes (Hospitalization)
  Sender: FDA-Public Use
  Company Number: DE-NAPPMUNDI-DEU-2011-0006978

PATIENT
  Sex: Female
  Weight: 88 kg

DRUGS (4)
  1. BISOPROLOL [Concomitant]
  2. ENALAPRIL MALEATE [Concomitant]
  3. NORSPAN 5 UG/H [Suspect]
     Indication: PRODUCT USED FOR UNKNOWN INDICATION
     Dosage: 5 MCG, Q1H
     Route: 062
     Dates: start: 20101116
  4. MARCUMAR [Interacting]
     Indication: PRODUCT USED FOR UNKNOWN INDICATION

REACTIONS (3)
  - EPISTAXIS [None]
  - DRUG INTERACTION [None]
  - PROTHROMBIN TIME PROLONGED [None]
